FAERS Safety Report 7782829-5 (Version None)
Quarter: 2011Q3

REPORT INFORMATION
  Report Type: 
  Country: None (occurrence: None)
  Receive Date: 20110926
  Receipt Date: 20110926
  Transmission Date: 20111222
  Serious: Yes (Death)
  Sender: FDA-Public Use
  Company Number: DKLU1073147

PATIENT
  Age: 3 Year
  Sex: Female

DRUGS (3)
  1. KEPPRA [Concomitant]
  2. SABRIL [Suspect]
     Indication: INFANTILE SPASMS
     Dosage: 750 MG MILLIGRAM(S), 2 IN 1 D, ORAL
     Route: 048
     Dates: start: 20101115
  3. TRILEPTAL [Concomitant]

REACTIONS (1)
  - DEATH [None]
